FAERS Safety Report 6279537-9 (Version None)
Quarter: 2009Q3

REPORT INFORMATION
  Report Type: 
  Country: None (occurrence: None)
  Receive Date: 20090723
  Receipt Date: 20090709
  Transmission Date: 20100115
  Serious: Yes (Life-Threatening, Hospitalization)
  Sender: FDA-Public Use
  Company Number: US-JNJFOC-20090702938

PATIENT
  Sex: Female

DRUGS (3)
  1. ULTRAM [Suspect]
     Route: 048
  2. ULTRAM [Suspect]
     Indication: DRUG USE FOR UNKNOWN INDICATION
     Dosage: 20 TABLETS
     Route: 048
  3. HORMONES [Concomitant]
     Route: 065

REACTIONS (6)
  - CONVULSION [None]
  - HYPERTENSION [None]
  - OVERDOSE [None]
  - RESPIRATORY DEPRESSION [None]
  - TACHYCARDIA [None]
  - VOMITING [None]
